FAERS Safety Report 9025223 (Version 24)
Quarter: 2022Q4

REPORT INFORMATION
  Report Type: Other
  Country: CA (occurrence: None)
  Receive Date: 20130122
  Receipt Date: 20221228
  Transmission Date: 20230113
  Serious: Yes (Hospitalization, Other)
  Sender: FDA-Public Use
  Company Number: CA-ROCHE-CID000000002221870

PATIENT
  Age: 20 Year
  Sex: Female
  Weight: 83 kg

DRUGS (10)
  1. ACTEMRA [Suspect]
     Active Substance: TOCILIZUMAB
     Indication: Juvenile idiopathic arthritis
     Route: 042
     Dates: start: 20120405, end: 20120502
  2. ACTEMRA [Suspect]
     Active Substance: TOCILIZUMAB
     Dosage: INFUSIONS STOPPED DUE TO LACK OF EFFECT.
     Route: 042
     Dates: start: 20120530, end: 20150924
  3. ACTEMRA [Suspect]
     Active Substance: TOCILIZUMAB
     Route: 042
     Dates: start: 20141110
  4. ACTEMRA [Suspect]
     Active Substance: TOCILIZUMAB
     Route: 042
     Dates: start: 20141210
  5. ACTEMRA [Suspect]
     Active Substance: TOCILIZUMAB
     Dosage: ONGOING
     Route: 042
     Dates: start: 20200302
  6. ARAVA [Concomitant]
     Active Substance: LEFLUNOMIDE
     Indication: Product used for unknown indication
  7. LEFLUNOMIDE [Concomitant]
     Active Substance: LEFLUNOMIDE
  8. DICLOFENAC [Concomitant]
     Active Substance: DICLOFENAC
  9. NAPROXEN [Concomitant]
     Active Substance: NAPROXEN
     Indication: Product used for unknown indication
  10. NAPROXEN [Concomitant]
     Active Substance: NAPROXEN

REACTIONS (26)
  - Depression [Recovered/Resolved]
  - Dehydration [Unknown]
  - Tooth disorder [Unknown]
  - Nasopharyngitis [Recovered/Resolved]
  - Peripheral swelling [Unknown]
  - Joint swelling [Unknown]
  - Arthralgia [Unknown]
  - Food poisoning [Recovered/Resolved]
  - Gastroenteritis viral [Recovered/Resolved]
  - Hypotension [Unknown]
  - Limb injury [Unknown]
  - Accident [Unknown]
  - Complication associated with device [Unknown]
  - Urinary tract infection [Unknown]
  - Cough [Unknown]
  - Arthropathy [Unknown]
  - Heart rate increased [Unknown]
  - Oxygen saturation decreased [Unknown]
  - Drug ineffective [Unknown]
  - Weight decreased [Unknown]
  - Swelling [Unknown]
  - Pain [Unknown]
  - Blood pressure diastolic abnormal [Unknown]
  - Blood pressure diastolic increased [Unknown]
  - Weight increased [Unknown]
  - Blood pressure systolic increased [Unknown]

NARRATIVE: CASE EVENT DATE: 20121024
